FAERS Safety Report 9714743 (Version 4)
Quarter: 2014Q1

REPORT INFORMATION
  Report Type: Spontaneous
  Country: JP (occurrence: JP)
  Receive Date: 20131126
  Receipt Date: 20140103
  Transmission Date: 20141002
  Serious: Yes (Life-Threatening, Hospitalization, Other)
  Sender: FDA-Public Use
  Company Number: JP-MYLANLABS-2013S1026694

PATIENT
  Age: 65 Year
  Sex: Female
  Weight: 50 kg

DRUGS (13)
  1. KLARICID /00984601/ [Suspect]
     Indication: OSTEOMYELITIS
     Route: 048
  2. SEVOFLURANE [Suspect]
     Indication: GENERAL ANAESTHESIA
     Dates: start: 20130315, end: 20130315
  3. REMIFENTANIL [Suspect]
     Indication: GENERAL ANAESTHESIA
     Dates: start: 20130315, end: 20130315
  4. REMIFENTANIL [Suspect]
     Indication: MAINTENANCE OF ANAESTHESIA
     Dates: start: 20130315, end: 20130315
  5. BEPRICOR [Suspect]
     Indication: ARRHYTHMIA PROPHYLAXIS
     Route: 048
  6. BEPRICOR [Suspect]
     Indication: ATRIAL FIBRILLATION
     Route: 048
  7. MAINTATE [Suspect]
     Indication: ARRHYTHMIA PROPHYLAXIS
     Route: 048
  8. MAINTATE [Suspect]
     Indication: ATRIAL FIBRILLATION
     Route: 048
  9. PROPOFOL [Suspect]
     Indication: GENERAL ANAESTHESIA
     Route: 042
     Dates: start: 20130315, end: 20130315
  10. ROCURONIUM [Suspect]
     Indication: GENERAL ANAESTHESIA
     Route: 042
     Dates: start: 20130315, end: 20130315
  11. ANESTHETICS [Suspect]
     Indication: GENERAL ANAESTHESIA
  12. VERAPAMIL [Concomitant]
     Indication: ARRHYTHMIA PROPHYLAXIS
  13. PERAMIVIR [Concomitant]
     Indication: ARRHYTHMIA PROPHYLAXIS
     Route: 048

REACTIONS (7)
  - Ventricular extrasystoles [Recovered/Resolved]
  - Electrocardiogram QT prolonged [Recovered/Resolved]
  - Drug interaction [Unknown]
  - Torsade de pointes [Recovered/Resolved]
  - Ventricular fibrillation [Recovered/Resolved]
  - Cardiac disorder [Recovered/Resolved]
  - Electrolyte imbalance [Recovered/Resolved]
